FAERS Safety Report 17387090 (Version 1)
Quarter: 2020Q1

REPORT INFORMATION
  Report Type: Spontaneous
  Country: US (occurrence: US)
  Receive Date: 20200206
  Receipt Date: 20200206
  Transmission Date: 20200409
  Serious: Yes (Hospitalization)
  Sender: FDA-Public Use
  Company Number: US-LUNDBECK-DKLU3011289

PATIENT
  Age: 1 Year
  Sex: Male
  Weight: 11 kg

DRUGS (13)
  1. ONFI [Concomitant]
     Active Substance: CLOBAZAM
     Route: 065
     Dates: start: 20190925
  2. DEPAKOTE ER [Concomitant]
     Active Substance: DIVALPROEX SODIUM
     Indication: SEIZURE
     Dosage: 24 HOUR TABLET
     Route: 065
     Dates: start: 20190924
  3. FELBATOL [Concomitant]
     Active Substance: FELBAMATE
     Route: 065
     Dates: start: 20191002
  4. EMLA [Concomitant]
     Active Substance: LIDOCAINE\PRILOCAINE
     Indication: PRODUCT USED FOR UNKNOWN INDICATION
     Route: 061
  5. SABRIL [Suspect]
     Active Substance: VIGABATRIN
     Indication: EPILEPSY
     Route: 048
     Dates: start: 20191105
  6. ONFI [Concomitant]
     Active Substance: CLOBAZAM
     Indication: SEIZURE
     Route: 065
     Dates: start: 20190925
  7. DIASTAT [Concomitant]
     Active Substance: DIAZEPAM
     Indication: PRODUCT USED FOR UNKNOWN INDICATION
     Route: 054
  8. FELBATOL [Concomitant]
     Active Substance: FELBAMATE
     Indication: SEIZURE
     Route: 065
     Dates: start: 20191002
  9. FELBATOL [Concomitant]
     Active Substance: FELBAMATE
     Route: 065
     Dates: start: 20191002
  10. CARNITOR [Concomitant]
     Active Substance: LEVOCARNITINE
     Indication: PRODUCT USED FOR UNKNOWN INDICATION
     Route: 065
  11. SABRIL [Suspect]
     Active Substance: VIGABATRIN
     Indication: SEIZURE
     Route: 048
     Dates: start: 20191204
  12. LAMICTAL [Concomitant]
     Active Substance: LAMOTRIGINE
     Dates: start: 20191226
  13. LAMICTAL [Concomitant]
     Active Substance: LAMOTRIGINE
     Indication: SEIZURE
     Route: 065
     Dates: start: 20191226

REACTIONS (3)
  - Seizure [Recovered/Resolved]
  - Hypoxia [Recovered/Resolved]
  - Upper respiratory tract infection [Recovered/Resolved]

NARRATIVE: CASE EVENT DATE: 20200112
